FAERS Safety Report 7911305-1 (Version None)
Quarter: 2011Q4

REPORT INFORMATION
  Report Type: 
  Country: None (occurrence: None)
  Receive Date: 20111114
  Receipt Date: 20111110
  Transmission Date: 20120403
  Serious: Yes (Hospitalization, Other)
  Sender: FDA-Public Use
  Company Number: US-AMGEN-USASP2011054914

PATIENT
  Age: 66 Year
  Sex: Female
  Weight: 105 kg

DRUGS (3)
  1. PREDNISONE TAB [Concomitant]
     Indication: IDIOPATHIC THROMBOCYTOPENIC PURPURA
     Dosage: 80 MG, QD
     Route: 048
     Dates: start: 20100315, end: 20100416
  2. RITUXAN [Concomitant]
     Indication: IDIOPATHIC THROMBOCYTOPENIC PURPURA
     Dosage: 275 MG/M2, QWK
     Route: 042
     Dates: start: 20101105, end: 20101129
  3. NPLATE [Suspect]
     Indication: AUTOIMMUNE THROMBOCYTOPENIA
     Dosage: 250 MUG, QWK
     Route: 058
     Dates: start: 20100402, end: 20110923

REACTIONS (6)
  - OVARIAN CYST [None]
  - THERAPEUTIC RESPONSE DECREASED [None]
  - DIVERTICULUM INTESTINAL [None]
  - ABDOMINAL HERNIA [None]
  - OSTEOARTHRITIS [None]
  - ARTERIOSCLEROSIS [None]
